FAERS Safety Report 7653169-X (Version None)
Quarter: 2011Q3

REPORT INFORMATION
  Report Type: 
  Country: None (occurrence: None)
  Receive Date: 20110803
  Receipt Date: 20110729
  Transmission Date: 20111222
  Serious: Yes (Other)
  Sender: FDA-Public Use
  Company Number: US-ROXANE LABORATORIES, INC.-2011-RO-01087RO

PATIENT
  Age: 49 Year
  Sex: Male

DRUGS (7)
  1. METOPROLOL TARTRATE [Concomitant]
  2. NIACIN [Concomitant]
  3. LOSARTAN POTASSIUM [Suspect]
     Indication: HYPERTENSION
  4. ASPIRIN [Concomitant]
  5. GEMFRIBROZIL [Concomitant]
  6. METFORMIN HCL [Concomitant]
  7. INSULIN [Concomitant]

REACTIONS (1)
  - PSORIASIS [None]
